FAERS Safety Report 8313805-1 (Version None)
Quarter: 2012Q2

REPORT INFORMATION
  Report Type: 
  Country: None (occurrence: None)
  Receive Date: 20120426
  Receipt Date: 20120418
  Transmission Date: 20120825
  Serious: Yes (Death, Life-Threatening, Hospitalization, Other)
  Sender: FDA-Public Use
  Company Number: DE-BRISTOL-MYERS SQUIBB COMPANY-15578743

PATIENT
  Age: 60 Year
  Sex: Male
  Weight: 95 kg

DRUGS (10)
  1. ACETYLSALICYLIC ACID SRT [Concomitant]
     Dates: end: 20110208
  2. EPROSARTAN MESILATE [Concomitant]
     Dates: end: 20110127
  3. CERNEVIT-12 [Concomitant]
     Dates: start: 20110127, end: 20110205
  4. ALIMTA [Suspect]
     Indication: NON-SMALL CELL LUNG CANCER STAGE IV
     Route: 065
     Dates: start: 20110121, end: 20110121
  5. TPN [Concomitant]
     Dates: start: 20110127, end: 20110205
  6. FOLIC ACID [Concomitant]
  7. VITAMIN B-12 [Concomitant]
  8. DEXAMETHASONE [Concomitant]
  9. CISPLATIN [Suspect]
     Indication: NON-SMALL CELL LUNG CANCER STAGE IV
     Route: 065
     Dates: start: 20110121, end: 20110121
  10. METOPROLOL TARTRATE [Concomitant]
     Dates: end: 20110127

REACTIONS (4)
  - SYNCOPE [None]
  - SEPTIC SHOCK [None]
  - LEUKOPENIA [None]
  - DIVERTICULAR PERFORATION [None]
